FAERS Safety Report 17636389 (Version 1)
Quarter: 2020Q2

REPORT INFORMATION
  Report Type: Spontaneous
  Country: CA (occurrence: CA)
  Receive Date: 20200407
  Receipt Date: 20200407
  Transmission Date: 20200713
  Serious: Yes (Other)
  Sender: FDA-Public Use
  Company Number: CA-009507513-2004CAN001076

PATIENT
  Age: 51 Year
  Sex: Female

DRUGS (11)
  1. OMALIZUMAB. [Suspect]
     Active Substance: OMALIZUMAB
     Indication: PRURITUS
     Dosage: UNK, DOSAGE FORM NOT SPECIFIED
     Route: 065
  2. BRENTUXIMAB VEDOTIN [Concomitant]
     Active Substance: BRENTUXIMAB VEDOTIN
     Indication: HODGKIN^S DISEASE
     Dosage: UNK
     Route: 065
  3. AFATINIB [Suspect]
     Active Substance: AFATINIB
     Indication: HODGKIN^S DISEASE
     Dosage: 10 MG, FREQUENCY: 2 EVERY 1 DAYS, DOSAGE FORM NOT SPECIFIED
     Route: 065
  4. NIVOLUMAB [Concomitant]
     Active Substance: NIVOLUMAB
     Indication: HODGKIN^S DISEASE
     Dosage: UNK, DOSAGE FORM: SOLUTION INTRAVENOUS
     Route: 065
  5. EMEND [Suspect]
     Active Substance: APREPITANT
     Indication: PRURITUS
     Dosage: UNK
     Route: 065
  6. DEXTROMETHORPHAN HYDROBROMIDE (+) GUAIFENESIN (+) PHENYLEPHRINE HYDROC [Concomitant]
     Indication: HODGKIN^S DISEASE
     Dosage: UNK
     Route: 065
  7. AMITRIPTYLINE HYDROCHLORIDE. [Suspect]
     Active Substance: AMITRIPTYLINE HYDROCHLORIDE
     Indication: PRURITUS
     Dosage: UNK
     Route: 065
  8. BLEOMYCIN (+) DACARBAZINE (+) DOXORUBICIN (+) VINBLASTINE SULFATE [Concomitant]
     Indication: HODGKIN^S DISEASE
     Dosage: UNK
     Route: 065
  9. CYTOXAN [Concomitant]
     Active Substance: CYCLOPHOSPHAMIDE
     Indication: HODGKIN^S DISEASE
     Dosage: UNK, DOSAGE FORM NOT SPECIFIED
     Route: 065
  10. PROCARBAZINE [Concomitant]
     Active Substance: PROCARBAZINE
     Indication: HODGKIN^S DISEASE
     Dosage: UNK, DOSAGE FORM NOT SPECIFIED
     Route: 065
  11. NAVELBINE [Concomitant]
     Active Substance: VINORELBINE TARTRATE
     Indication: HODGKIN^S DISEASE
     Dosage: UNK, DOSAGE FORM NOT SPECIFIED
     Route: 065

REACTIONS (4)
  - Drug ineffective [Unknown]
  - Insomnia [Unknown]
  - Pruritus [Unknown]
  - Disease progression [Unknown]
